FAERS Safety Report 14160198 (Version 3)
Quarter: 2018Q2

REPORT INFORMATION
  Report Type: Spontaneous
  Country: JP (occurrence: JP)
  Receive Date: 20171106
  Receipt Date: 20180427
  Transmission Date: 20180711
  Serious: Yes (Death, Other)
  Sender: FDA-Public Use
  Company Number: JP-009507513-1710JPN003465J

PATIENT
  Age: 74 Year
  Sex: Male
  Weight: 47 kg

DRUGS (8)
  1. FENTOS [Concomitant]
     Active Substance: FENTANYL
     Indication: LUNG ADENOCARCINOMA
     Dosage: 1 MG, QD
     Route: 062
  2. KEYTRUDA [Suspect]
     Active Substance: PEMBROLIZUMAB
     Indication: LUNG ADENOCARCINOMA
     Dosage: 200 MG, Q3W
     Route: 041
     Dates: start: 20170414, end: 20170414
  3. LYRICA [Concomitant]
     Active Substance: PREGABALIN
     Indication: LUNG ADENOCARCINOMA
     Dosage: 75 MG, BID
     Route: 048
  4. DENOTAS [Concomitant]
     Active Substance: CALCIUM CARBONATE\CHOLECALCIFEROL\MAGNESIUM CARBONATE
     Indication: LUNG ADENOCARCINOMA
     Dosage: 610 MG, QD
     Route: 048
  5. RANMARK [Concomitant]
     Active Substance: DENOSUMAB
     Indication: LUNG ADENOCARCINOMA
     Dosage: 120 MG, EVERY 4 WEEKS
     Route: 051
  6. TRAMCET [Concomitant]
     Active Substance: ACETAMINOPHEN\TRAMADOL
     Indication: LUNG ADENOCARCINOMA
     Dosage: 1 DF, QID
     Route: 048
  7. RISPERIDONE. [Concomitant]
     Active Substance: RISPERIDONE
     Indication: PROPHYLAXIS
     Dosage: 1 MG, QD
     Route: 048
  8. ROZEREM [Concomitant]
     Active Substance: RAMELTEON
     Indication: PROPHYLAXIS
     Dosage: 8 MG, QD
     Route: 048

REACTIONS (1)
  - Malignant neoplasm progression [Fatal]

NARRATIVE: CASE EVENT DATE: 20170603
